FAERS Safety Report 16594612 (Version 9)
Quarter: 2022Q2

REPORT INFORMATION
  Report Type: Spontaneous
  Country: IN (occurrence: IN)
  Receive Date: 20190718
  Receipt Date: 20220531
  Transmission Date: 20220720
  Serious: Yes (Other)
  Sender: FDA-Public Use
  Company Number: IN-SA-2019SA191035

PATIENT
  Sex: Male

DRUGS (8)
  1. LANTUS SOLOSTAR [Suspect]
     Active Substance: INSULIN GLARGINE
     Indication: Diabetes mellitus management
     Dosage: 15 IU, QD
     Route: 065
     Dates: start: 201507
  2. LANTUS SOLOSTAR [Suspect]
     Active Substance: INSULIN GLARGINE
     Indication: Type 1 diabetes mellitus
  3. INSULIN ASPART [Suspect]
     Active Substance: INSULIN ASPART
     Indication: Diabetes mellitus management
     Dosage: 12 IU, QD (AT NIGHT)
     Route: 065
  4. INSULIN ASPART [Suspect]
     Active Substance: INSULIN ASPART
     Indication: Type 1 diabetes mellitus
  5. INSULIN HUMAN NOS [Suspect]
     Active Substance: INSULIN HUMAN
     Indication: Type 1 diabetes mellitus
     Dosage: AT DAY TIME TWICE DAILY
     Route: 065
  6. LIPICURE [Concomitant]
     Indication: Hyperlipidaemia
     Dosage: UNK
     Route: 065
  7. ZOLPIDEM TARTRATE [Concomitant]
     Active Substance: ZOLPIDEM TARTRATE
     Indication: Insomnia
     Dosage: UNK
     Route: 065
  8. MELSOMA [Concomitant]
     Indication: Insomnia
     Dosage: UNKNOWN
     Route: 065

REACTIONS (10)
  - Seizure [Recovered/Resolved]
  - Seizure [Not Recovered/Not Resolved]
  - Myoclonic epilepsy [Unknown]
  - Depression [Unknown]
  - Hyperlipidaemia [Unknown]
  - Blood bilirubin increased [Unknown]
  - Blood albumin increased [Unknown]
  - Globulins increased [Unknown]
  - Dawn phenomenon [Unknown]
  - Therapeutic response shortened [Unknown]

NARRATIVE: CASE EVENT DATE: 20190707
